FAERS Safety Report 10029690 (Version 1)
Quarter: 2014Q1

REPORT INFORMATION
  Report Type: Spontaneous
  Country: US (occurrence: None)
  Receive Date: 20140321
  Receipt Date: 20140321
  Transmission Date: 20141002
  Serious: Yes (Other)
  Sender: FDA-Public Use
  Company Number: None

PATIENT
  Age: 11 Year
  Sex: Male

DRUGS (2)
  1. CONCERTA [Suspect]
     Indication: DISTURBANCE IN ATTENTION
     Dosage: 1
     Route: 048
  2. CONCERTA [Suspect]
     Indication: PSYCHOMOTOR HYPERACTIVITY
     Dosage: 1
     Route: 048

REACTIONS (2)
  - Drug ineffective [None]
  - Product substitution issue [None]
